FAERS Safety Report 12815688 (Version 1)
Quarter: 2016Q4

REPORT INFORMATION
  Report Type: Report from Study
  Country: US (occurrence: US)
  Receive Date: 20161006
  Receipt Date: 20161006
  Transmission Date: 20170207
  Serious: No
  Sender: FDA-Public Use
  Company Number: US-AMGEN-USASL2016070145

PATIENT
  Age: 72 Year
  Sex: Female

DRUGS (2)
  1. PROLIA [Suspect]
     Active Substance: DENOSUMAB
     Indication: PRODUCT USED FOR UNKNOWN INDICATION
     Dosage: UNK
     Route: 065
  2. ARIMIDEX [Concomitant]
     Active Substance: ANASTROZOLE
     Indication: NEOPLASM MALIGNANT

REACTIONS (1)
  - Arthritis [Recovering/Resolving]

NARRATIVE: CASE EVENT DATE: 2016
